FAERS Safety Report 25581609 (Version 1)
Quarter: 2025Q3

REPORT INFORMATION
  Report Type: Spontaneous
  Country: CA (occurrence: CA)
  Receive Date: 20250719
  Receipt Date: 20250719
  Transmission Date: 20251021
  Serious: Yes (Other)
  Sender: CELLTRION
  Company Number: CA-CELLTRION INC.-2025CA016046

PATIENT

DRUGS (2)
  1. INFLIXIMAB [Suspect]
     Active Substance: INFLIXIMAB
     Indication: Crohn^s disease
     Route: 042
     Dates: start: 20250520
  2. CORTISONE [Concomitant]
     Active Substance: CORTISONE

REACTIONS (7)
  - Rectal haemorrhage [Unknown]
  - Secretion discharge [Unknown]
  - Symptom recurrence [Unknown]
  - General physical health deterioration [Unknown]
  - Abnormal faeces [Unknown]
  - Abdominal pain [Unknown]
  - Off label use [Unknown]
